FAERS Safety Report 4850817-4 (Version None)
Quarter: 2005Q4

REPORT INFORMATION
  Report Type: 
  Country: None (occurrence: None)
  Receive Date: 20051212
  Receipt Date: 20051201
  Transmission Date: 20060501
  Serious: Yes (Life-Threatening)
  Sender: FDA-Public Use
  Company Number: DE-JNJFOC-20051200476

PATIENT
  Sex: Female
  Weight: 105 kg

DRUGS (1)
  1. DURAGESIC-100 [Suspect]
     Indication: POLYNEUROPATHY
     Route: 062

REACTIONS (1)
  - BLOOD PRESSURE INCREASED [None]
